FAERS Safety Report 5986017-4 (Version None)
Quarter: 2008Q4

REPORT INFORMATION
  Report Type: 
  Country: None (occurrence: None)
  Receive Date: 20081205
  Receipt Date: 20081205
  Transmission Date: 20090506
  Serious: Yes (Hospitalization)
  Sender: FDA-Public Use
  Company Number: None

PATIENT
  Age: 56 Year
  Sex: Male
  Weight: 81.6475 kg

DRUGS (1)
  1. QUALAQUIN [Suspect]
     Indication: MUSCLE SPASMS
     Dates: start: 20081112, end: 20081126

REACTIONS (15)
  - ABASIA [None]
  - CHILLS [None]
  - DIZZINESS [None]
  - DYSARTHRIA [None]
  - EYE PAIN [None]
  - FATIGUE [None]
  - HEADACHE [None]
  - MUSCLE TIGHTNESS [None]
  - NAUSEA [None]
  - OCULAR HYPERAEMIA [None]
  - OFF LABEL USE [None]
  - PYREXIA [None]
  - UNRESPONSIVE TO STIMULI [None]
  - VIRAL INFECTION [None]
  - VISUAL IMPAIRMENT [None]
